FAERS Safety Report 10090681 (Version 2)
Quarter: 2014Q2

REPORT INFORMATION
  Report Type: Spontaneous
  Country: US (occurrence: US)
  Receive Date: 20140421
  Receipt Date: 20140421
  Transmission Date: 20141212
  Serious: Yes (Hospitalization)
  Sender: FDA-Public Use
  Company Number: US-INCYTE CORPORATION-2014IN000862

PATIENT
  Age: 83 Year
  Sex: Male

DRUGS (7)
  1. JAKAFI [Suspect]
     Indication: MYELOFIBROSIS
     Dosage: 20 MG, BID
     Route: 048
  2. LIPITOR [Concomitant]
  3. METFORMIN [Concomitant]
     Dosage: UNK
  4. LISINOPRIL [Concomitant]
  5. GLIPIZIDE [Concomitant]
  6. HYDROCHLOROTHIAZIDE [Concomitant]
  7. ASPIRIN [Concomitant]
     Dosage: 81 MG, UNK

REACTIONS (4)
  - Cerebrovascular accident [Unknown]
  - Constipation [Recovering/Resolving]
  - Abdominal pain [Recovering/Resolving]
  - Flatulence [Not Recovered/Not Resolved]
